FAERS Safety Report 5176847-3 (Version None)
Quarter: 2006Q4

REPORT INFORMATION
  Report Type: 
  Country: None (occurrence: None)
  Receive Date: 20061218
  Receipt Date: 20061207
  Transmission Date: 20070319
  Serious: Yes (Other)
  Sender: FDA-Public Use
  Company Number: GR-JNJFOC-20061201911

PATIENT
  Age: 12 Year
  Sex: Male
  Weight: 56 kg

DRUGS (4)
  1. CONCERTA [Suspect]
     Route: 048
  2. CONCERTA [Suspect]
     Indication: ATTENTION DEFICIT/HYPERACTIVITY DISORDER
     Route: 048
  3. FLIXOTIDE [Concomitant]
     Indication: DYSPHONIA
     Route: 055
     Dates: start: 20061113, end: 20061114
  4. AURID [Concomitant]
     Indication: RHINORRHOEA
     Route: 045
     Dates: start: 20061113, end: 20061114

REACTIONS (2)
  - CHEST PAIN [None]
  - DYSPNOEA [None]
